FAERS Safety Report 11874677 (Version 1)
Quarter: 2015Q4

REPORT INFORMATION
  Report Type: Spontaneous
  Country: US (occurrence: US)
  Receive Date: 20151229
  Receipt Date: 20151229
  Transmission Date: 20160305
  Serious: Yes (Other)
  Sender: FDA-Public Use
  Company Number: US-CIPLA LTD.-2015US09601

PATIENT

DRUGS (3)
  1. MARIJUANA [Suspect]
     Active Substance: CANNABIS SATIVA SUBSP. INDICA TOP
     Dosage: UNK
     Route: 064
  2. COCAINE [Suspect]
     Active Substance: COCAINE
     Dosage: UNK
     Route: 064
  3. RISPERIDONE. [Suspect]
     Active Substance: RISPERIDONE
     Dosage: MOTHER TOOK 2 OR 4MG DAY
     Route: 064

REACTIONS (7)
  - Pallor [Unknown]
  - Foetal exposure during pregnancy [Unknown]
  - Cyanosis [Unknown]
  - Drug withdrawal syndrome [Unknown]
  - Neonatal disorder [Unknown]
  - Hyperreflexia [Unknown]
  - Seizure [Unknown]
